FAERS Safety Report 14411908 (Version 1)
Quarter: 2018Q1

REPORT INFORMATION
  Report Type: Spontaneous
  Country: US (occurrence: US)
  Receive Date: 20180119
  Receipt Date: 20180119
  Transmission Date: 20180509
  Serious: Yes (Other)
  Sender: FDA-Public Use
  Company Number: US-VIFOR (INTERNATIONAL) INC.-VIT-2017-13596

PATIENT
  Age: 84 Year
  Sex: Female
  Weight: 68.5 kg

DRUGS (1)
  1. MIRCERA [Suspect]
     Active Substance: METHOXY POLYETHYLENE GLYCOL-EPOETIN BETA
     Indication: PRODUCT USED FOR UNKNOWN INDICATION
     Dosage: 225 (3 -75 MICROGRAM SYRINGES)
     Dates: start: 20171201

REACTIONS (2)
  - Dyspnoea [Unknown]
  - Blood pressure systolic increased [Unknown]

NARRATIVE: CASE EVENT DATE: 20171201
